FAERS Safety Report 14321311 (Version 1)
Quarter: 2017Q4

REPORT INFORMATION
  Report Type: Report from Study
  Country: FR (occurrence: FR)
  Receive Date: 20171223
  Receipt Date: 20171223
  Transmission Date: 20180321
  Serious: Yes (Hospitalization)
  Sender: FDA-Public Use
  Company Number: PHHO2017FR012518

PATIENT
  Age: 75 Year
  Sex: Male
  Weight: 79 kg

DRUGS (23)
  1. BISOPROLOL [Suspect]
     Active Substance: BISOPROLOL
     Indication: CARDIAC FAILURE
     Dosage: 5 MG, QD
     Route: 048
     Dates: start: 2004, end: 20170811
  2. ALDACTONE [Concomitant]
     Active Substance: SPIRONOLACTONE
     Dosage: 25 MG, QD
     Route: 048
     Dates: start: 20170815, end: 20170816
  3. FURO [Concomitant]
     Active Substance: FUROSEMIDE
     Dosage: 250 MG, QD
     Route: 042
     Dates: start: 20170812, end: 20170816
  4. FURO [Concomitant]
     Active Substance: FUROSEMIDE
     Dosage: 500 MG, QD
     Route: 042
     Dates: start: 20170830, end: 20170901
  5. LISINOPRIL. [Concomitant]
     Active Substance: LISINOPRIL
     Indication: CARDIAC FAILURE
     Dosage: 15 MG, QD
     Route: 048
     Dates: start: 2016, end: 20170811
  6. FURO [Concomitant]
     Active Substance: FUROSEMIDE
     Dosage: 125 MG, QD
     Route: 048
     Dates: start: 20170816, end: 20170818
  7. FURO [Concomitant]
     Active Substance: FUROSEMIDE
     Dosage: 125 MG, QD
     Route: 048
     Dates: start: 20170902
  8. FURO [Concomitant]
     Active Substance: FUROSEMIDE
     Dosage: 80 MG, QD
     Route: 048
     Dates: start: 20170914, end: 20170920
  9. TAHOR [Concomitant]
     Active Substance: ATORVASTATIN CALCIUM
     Indication: PROPHYLAXIS
     Dosage: 20 MG, QD
     Route: 048
     Dates: start: 20051025
  10. LCZ696 [Suspect]
     Active Substance: SACUBITRIL\VALSARTAN
     Indication: CARDIAC FAILURE
     Dosage: NO TREATMENT
     Route: 065
  11. COUMADIN [Concomitant]
     Active Substance: WARFARIN SODIUM
     Indication: THROMBOSIS PROPHYLAXIS
     Dosage: PRN QD
     Route: 048
     Dates: start: 2005
  12. LCZ696 [Suspect]
     Active Substance: SACUBITRIL\VALSARTAN
     Dosage: 50 MG, UNK
     Route: 048
     Dates: start: 20170901
  13. LCZ696 [Suspect]
     Active Substance: SACUBITRIL\VALSARTAN
     Dosage: 50 MG, UNK
     Route: 048
     Dates: start: 20171003, end: 20171202
  14. DIFFU K [Concomitant]
     Active Substance: POTASSIUM CHLORIDE
     Indication: PROPHYLAXIS
     Dosage: PRN QD
     Route: 048
     Dates: start: 20170811, end: 20170904
  15. FURO [Concomitant]
     Active Substance: FUROSEMIDE
     Indication: CARDIAC FAILURE
     Dosage: 500 MG, QD
     Route: 042
     Dates: start: 20170811, end: 20170812
  16. FURO [Concomitant]
     Active Substance: FUROSEMIDE
     Dosage: 40 MG, QD
     Route: 048
     Dates: start: 20170921
  17. LCZ696 [Suspect]
     Active Substance: SACUBITRIL\VALSARTAN
     Dosage: 100 MG, BID
     Route: 048
     Dates: start: 20170920, end: 20171002
  18. BISOPROLOL [Suspect]
     Active Substance: BISOPROLOL
     Dosage: 2.5 MG, QD
     Route: 048
     Dates: start: 20170812
  19. LASILIX [Concomitant]
     Active Substance: FUROSEMIDE
     Indication: CARDIAC FAILURE
     Dosage: 120 MG, QD
     Route: 048
     Dates: start: 20170420, end: 20170811
  20. ZYLORIC [Concomitant]
     Active Substance: ALLOPURINOL
     Indication: ALLERGY PROPHYLAXIS
     Dosage: UNK
     Route: 065
     Dates: start: 20170420, end: 20170811
  21. ALDACTONE [Concomitant]
     Active Substance: SPIRONOLACTONE
     Indication: CARDIAC FAILURE
     Dosage: 25 MG, QD
     Route: 048
     Dates: start: 20131105, end: 20170811
  22. FURO [Concomitant]
     Active Substance: FUROSEMIDE
     Dosage: 40 MG, QD
     Route: 048
     Dates: start: 20170818, end: 20170830
  23. FURO [Concomitant]
     Active Substance: FUROSEMIDE
     Dosage: 40 MG, QD
     Route: 048
     Dates: start: 20170902, end: 20170913

REACTIONS (4)
  - Cardiogenic shock [Recovered/Resolved]
  - Renal failure [Recovered/Resolved]
  - Cardiac failure [Recovered/Resolved]
  - Cardiac failure [Recovered/Resolved]

NARRATIVE: CASE EVENT DATE: 20170830
